FAERS Safety Report 7028170-X (Version None)
Quarter: 2010Q3

REPORT INFORMATION
  Report Type: 
  Country: None (occurrence: None)
  Receive Date: 20100930
  Receipt Date: 20100920
  Transmission Date: 20110219
  Serious: Yes (Other)
  Sender: FDA-Public Use
  Company Number: LEO-2010-00853

PATIENT
  Age: 78 Year
  Sex: Female
  Weight: 81.6475 kg

DRUGS (1)
  1. DAIVOBET GEL (BETAMETHASONE DIPROPIONATE, CALCIPOTRIOL) [Suspect]
     Indication: PSORIASIS
     Dosage: (1 IN 1 D),ON SCALP
     Dates: start: 20100914, end: 20100918

REACTIONS (7)
  - CHEST DISCOMFORT [None]
  - DYSPNOEA [None]
  - HEADACHE [None]
  - MUSCLE SPASMS [None]
  - PAIN IN EXTREMITY [None]
  - POLLAKIURIA [None]
  - WHEEZING [None]
